FAERS Safety Report 20064589 (Version 1)
Quarter: 2021Q4

REPORT INFORMATION
  Report Type: Spontaneous
  Country: US (occurrence: US)
  Receive Date: 20211112
  Receipt Date: 20211112
  Transmission Date: 20220303
  Serious: Yes (Other)
  Sender: FDA-Public Use
  Company Number: US-PFIZER INC-2021541017

PATIENT
  Age: 70 Year
  Sex: Female

DRUGS (6)
  1. RUXIENCE [Suspect]
     Active Substance: RITUXIMAB-PVVR
     Dosage: 700 MG, CYCLIC (PATIENT IS PRESCRIBED RUXIENCE EVERY 21 DAYS)
  2. RUXIENCE [Suspect]
     Active Substance: RITUXIMAB-PVVR
     Dosage: 200 MG
  3. RUXIENCE [Suspect]
     Active Substance: RITUXIMAB-PVVR
     Dosage: 500 MG
  4. SODIUM CHLORIDE [Concomitant]
     Active Substance: SODIUM CHLORIDE
     Dosage: 150 ML (ONCE/NR)
     Route: 042
     Dates: start: 20210413, end: 20210414
  5. SODIUM CHLORIDE [Concomitant]
     Active Substance: SODIUM CHLORIDE
     Dosage: 150 ML (ONCE/NR)
     Route: 042
     Dates: start: 20210419, end: 20210420
  6. SODIUM CHLORIDE [Concomitant]
     Active Substance: SODIUM CHLORIDE
     Dosage: 150 ML (ONCE/NR)
     Route: 042
     Dates: start: 20210420, end: 20210421

REACTIONS (2)
  - Malaise [Unknown]
  - Off label use [Unknown]
